FAERS Safety Report 14537418 (Version 2)
Quarter: 2018Q1

REPORT INFORMATION
  Report Type: Report from Study
  Country: KR (occurrence: KR)
  Receive Date: 20180215
  Receipt Date: 20180301
  Transmission Date: 20180509
  Serious: Yes (Other)
  Sender: FDA-Public Use
  Company Number: KR-OTSUKA-2018_003797

PATIENT
  Sex: Female

DRUGS (6)
  1. ZYPREXA [Concomitant]
     Active Substance: OLANZAPINE
     Indication: SCHIZOPHRENIA
     Dosage: 1 DF, QD
     Route: 065
     Dates: start: 20180116, end: 20180208
  2. ARIPIPRAZOLE (DUAL CHAMBER) [Suspect]
     Active Substance: ARIPIPRAZOLE
     Indication: SCHIZOPHRENIA
     Dosage: 400 MG, UNK
     Route: 030
     Dates: start: 20171219
  3. ARIPIPRAZOLE (DUAL CHAMBER) [Suspect]
     Active Substance: ARIPIPRAZOLE
     Dosage: 400 MG, UNK
     Route: 030
     Dates: start: 20180116
  4. ABILIFY [Suspect]
     Active Substance: ARIPIPRAZOLE
     Indication: SCHIZOPHRENIA
     Dosage: 2 DF, QD
     Route: 065
     Dates: start: 20171121, end: 20180102
  5. LORAVAN [Concomitant]
     Active Substance: LORAZEPAM
     Indication: ANXIETY
     Dosage: 2 DF, QD
     Route: 065
     Dates: start: 20171024, end: 20180208
  6. STILNOX CR [Concomitant]
     Active Substance: ZOLPIDEM TARTRATE
     Indication: INSOMNIA
     Dosage: 1 DF, QD
     Route: 065
     Dates: start: 20171024, end: 20180208

REACTIONS (1)
  - Maternal exposure during pregnancy [Unknown]
